FAERS Safety Report 18832046 (Version 1)
Quarter: 2021Q1

REPORT INFORMATION
  Report Type: Spontaneous
  Country: US (occurrence: US)
  Receive Date: 20210203
  Receipt Date: 20210203
  Transmission Date: 20210419
  Serious: Yes (Other)
  Sender: FDA-Public Use
  Company Number: US-ACCORD-216123

PATIENT
  Age: 51 Year
  Sex: Male

DRUGS (5)
  1. LAMOTRIGINE. [Concomitant]
     Active Substance: LAMOTRIGINE
     Route: 048
  2. QUETIAPINE NORTHSTAR [Suspect]
     Active Substance: QUETIAPINE
     Indication: SLEEP DISORDER
     Dosage: STRENGTH 200 MG,ONE NIGHTLY
     Route: 048
  3. GABAPENTIN. [Concomitant]
     Active Substance: GABAPENTIN
     Dosage: CV
     Route: 048
  4. QUETIAPINE NORTHSTAR [Suspect]
     Active Substance: QUETIAPINE
     Indication: SLEEP DISORDER
     Dosage: STRENGTH 400 MG,ONE NIGHTLY
     Route: 048
     Dates: end: 202101
  5. QUETIAPINE NORTHSTAR [Suspect]
     Active Substance: QUETIAPINE
     Indication: SLEEP DISORDER
     Dosage: STRENGTH 300 MG,ONE NIGHTLY
     Route: 048

REACTIONS (7)
  - Drug ineffective [Unknown]
  - Product substitution issue [Unknown]
  - Hallucination, auditory [Unknown]
  - Confusional state [Unknown]
  - Disorientation [Unknown]
  - Memory impairment [Unknown]
  - Abnormal behaviour [Unknown]
